FAERS Safety Report 8632150 (Version 3)
Quarter: 2012Q4

REPORT INFORMATION
  Report Type: 
  Country: US (occurrence: US)
  Receive Date: 20120625
  Receipt Date: 20120906
  Transmission Date: 20130627
  Serious: Yes (Other)
  Sender: FDA-Public Use
  Company Number: US-BRISTOL-MYERS SQUIBB COMPANY-16687303

PATIENT
  Age: 54 Year
  Sex: Male
  Weight: 126 kg

DRUGS (5)
  1. YERVOY [Suspect]
     Indication: MALIGNANT MELANOMA
     Dosage: 1DF =5mh/ml, str:200mg/40mL
50mg/10mL,NDC:00003-2327-11,918360,ep7/14
19Apl12-360mg,10May12-350mg
     Route: 042
     Dates: start: 20120419, end: 20120510
  2. LISINOPRIL [Concomitant]
  3. COMPAZINE [Concomitant]
     Dosage: Evry 6 Hr
     Route: 048
  4. DYAZIDE [Concomitant]
     Dosage: 1DF: 25-37.5mg
  5. ZOFRAN [Concomitant]
     Dosage: Oral solution every 4 hr

REACTIONS (1)
  - Malignant neoplasm progression [Unknown]
